FAERS Safety Report 4761243-0 (Version None)
Quarter: 2005Q3

REPORT INFORMATION
  Report Type: 
  Country: None (occurrence: None)
  Receive Date: 20050902
  Receipt Date: 20050902
  Transmission Date: 20060218
  Serious: Yes (Other)
  Sender: FDA-Public Use
  Company Number: None

PATIENT
  Age: 47 Year
  Sex: Female

DRUGS (1)
  1. CYTOXAN [Suspect]
     Dosage: MIXING FOR ADMINISTRATION

REACTIONS (2)
  - ACCIDENTAL NEEDLE STICK [None]
  - MEDICATION ERROR [None]
